FAERS Safety Report 6868252-6 (Version None)
Quarter: 2010Q3

REPORT INFORMATION
  Report Type: 
  Country: None (occurrence: None)
  Receive Date: 20100722
  Receipt Date: 20080520
  Transmission Date: 20110219
  Serious: Yes (Other)
  Sender: FDA-Public Use
  Company Number: US-PFIZER INC-2008043427

PATIENT
  Sex: Female
  Weight: 84.545 kg

DRUGS (3)
  1. CHANTIX [Suspect]
     Indication: SMOKING CESSATION THERAPY
     Dates: start: 20080404
  2. BUPROPION [Concomitant]
     Indication: DEPRESSION
  3. ALL OTHER THERAPEUTIC PRODUCTS [Concomitant]
     Indication: ILL-DEFINED DISORDER

REACTIONS (6)
  - ABNORMAL DREAMS [None]
  - ARTHRALGIA [None]
  - DISORIENTATION [None]
  - DIZZINESS [None]
  - HALLUCINATION, AUDITORY [None]
  - IMPULSIVE BEHAVIOUR [None]
